FAERS Safety Report 22400607 (Version 1)
Quarter: 2023Q2

REPORT INFORMATION
  Report Type: Spontaneous
  Country: US (occurrence: None)
  Receive Date: 20230601
  Receipt Date: 20230601
  Transmission Date: 20230721
  Serious: Yes (Life-Threatening, Hospitalization, Disabling)
  Sender: FDA-Public Use
  Company Number: None

PATIENT
  Age: 67 Year
  Sex: Female
  Weight: 72.12 kg

DRUGS (17)
  1. CARBAMAZEPINE [Suspect]
     Active Substance: CARBAMAZEPINE
     Indication: Facial pain
     Dosage: FREQUENCY : TWICE A DAY;?
     Route: 048
     Dates: start: 20200130, end: 20200303
  2. CARBAMAZEPINE [Suspect]
     Active Substance: CARBAMAZEPINE
     Indication: Pain in jaw
  3. CARBAMAZEPINE [Suspect]
     Active Substance: CARBAMAZEPINE
     Indication: Oral pain
  4. CARBAMAZEPINE [Suspect]
     Active Substance: CARBAMAZEPINE
     Indication: Headache
  5. OMEPRAZOLE DR CER [Concomitant]
  6. LOSARTAN POTASSIUM [Concomitant]
     Active Substance: LOSARTAN POTASSIUM
  7. ALLOPURINOL [Concomitant]
  8. LEVOCETIRIZINE [Concomitant]
     Active Substance: LEVOCETIRIZINE
  9. LEVOTHYROXINE SODIUM [Concomitant]
     Active Substance: LEVOTHYROXINE SODIUM
  10. VITAMIN D [Concomitant]
     Active Substance: VITAMIN D NOS
  11. PEDNISONE [Concomitant]
  12. ROSUVASTATIN CALC. [Concomitant]
  13. CETIRIZINE HCL [Concomitant]
     Active Substance: CETIRIZINE HYDROCHLORIDE
  14. MAGNESIUM [Concomitant]
     Active Substance: MAGNESIUM
  15. ZINC [Concomitant]
     Active Substance: ZINC
  16. PROBIOTICS NOS [Concomitant]
     Active Substance: PROBIOTICS NOS
  17. BAYER LOW DOSE [Concomitant]
     Active Substance: ASPIRIN

REACTIONS (11)
  - Injury [None]
  - Blister [None]
  - Skin exfoliation [None]
  - Skin weeping [None]
  - Skin discolouration [None]
  - Hyperkeratosis [None]
  - Renal disorder [None]
  - Systemic lupus erythematosus [None]
  - Stevens-Johnson syndrome [None]
  - Toxic epidermal necrolysis [None]
  - Toxicity to various agents [None]

NARRATIVE: CASE EVENT DATE: 20230303
